FAERS Safety Report 25965118 (Version 1)
Quarter: 2025Q4

REPORT INFORMATION
  Report Type: Spontaneous
  Country: US (occurrence: US)
  Receive Date: 20251027
  Receipt Date: 20251027
  Transmission Date: 20260118
  Serious: No
  Sender: SANOFI AVENTIS
  Company Number: US-SA-2025SA309227

PATIENT
  Sex: Male

DRUGS (4)
  1. DUPIXENT [Suspect]
     Active Substance: DUPILUMAB
     Indication: Nasal polyps
     Dosage: 300 MG, QOW
     Route: 058
  2. OLOPATADINE HYDROCHLORIDE [Concomitant]
     Active Substance: OLOPATADINE HYDROCHLORIDE
  3. LISINOPRIL [Concomitant]
     Active Substance: LISINOPRIL
  4. SIMVASTATIN [Concomitant]
     Active Substance: SIMVASTATIN

REACTIONS (7)
  - Excessive cerumen production [Unknown]
  - Breath sounds abnormal [Unknown]
  - Tinnitus [Unknown]
  - Pruritus [Unknown]
  - Toothache [Unknown]
  - Dry eye [Unknown]
  - Arthralgia [Unknown]
